FAERS Safety Report 5700558-6 (Version None)
Quarter: 2008Q2

REPORT INFORMATION
  Report Type: 
  Country: None (occurrence: None)
  Receive Date: 20080410
  Receipt Date: 20080403
  Transmission Date: 20081010
  Serious: Yes (Other)
  Sender: FDA-Public Use
  Company Number: DE-PFIZER INC-2008029826

PATIENT
  Age: 72 Year
  Sex: Male

DRUGS (4)
  1. CABASERIL [Suspect]
     Indication: PARKINSON'S DISEASE
     Dosage: DAILY DOSE:4MG-TEXT:DAILY
  2. ALL OTHER THERAPEUTIC PRODUCTS [Concomitant]
  3. MADOPAR [Concomitant]
  4. CLOZAPINE [Concomitant]

REACTIONS (3)
  - MITRAL VALVE INCOMPETENCE [None]
  - PULMONARY HYPERTENSION [None]
  - TRICUSPID VALVE INCOMPETENCE [None]
